FAERS Safety Report 9371096 (Version 2)
Quarter: 2013Q3

REPORT INFORMATION
  Report Type: Report from Study
  Country: DE (occurrence: DE)
  Receive Date: 20130627
  Receipt Date: 20130718
  Transmission Date: 20140515
  Serious: Yes (Death)
  Sender: FDA-Public Use
  Company Number: DE-ROCHE-1240435

PATIENT
  Sex: Female
  Weight: 60 kg

DRUGS (1)
  1. RITUXIMAB [Suspect]
     Indication: CHRONIC LYMPHOCYTIC LEUKAEMIA
     Route: 042
     Dates: start: 20130417, end: 20130417

REACTIONS (7)
  - Influenza like illness [Fatal]
  - Pyrexia [Fatal]
  - Ileus [Fatal]
  - Malignant neoplasm progression [Fatal]
  - Arrhythmia [Fatal]
  - Nausea [Fatal]
  - Vomiting [Fatal]
